FAERS Safety Report 21784966 (Version 6)
Quarter: 2024Q1

REPORT INFORMATION
  Report Type: Spontaneous
  Country: CA (occurrence: CA)
  Receive Date: 20221227
  Receipt Date: 20240117
  Transmission Date: 20240410
  Serious: Yes (Life-Threatening, Hospitalization, Other)
  Sender: FDA-Public Use
  Company Number: CA-MLMSERVICE-20221215-3984584-1

PATIENT
  Age: 58 Year
  Sex: Male

DRUGS (3)
  1. RITUXIMAB [Suspect]
     Active Substance: RITUXIMAB
     Indication: Follicular lymphoma
     Dosage: UNK, 6 CYCLE
  2. RITUXIMAB [Suspect]
     Active Substance: RITUXIMAB
     Dosage: ADDITIONAL DOSE OF MAINTENANCE, CYCLIC
  3. BENDAMUSTINE [Concomitant]
     Active Substance: BENDAMUSTINE
     Indication: Follicular lymphoma
     Dosage: 6 CYCLES

REACTIONS (4)
  - Hypogammaglobulinaemia [Recovering/Resolving]
  - Respiratory failure [Recovering/Resolving]
  - COVID-19 pneumonia [Recovering/Resolving]
  - Organising pneumonia [Recovering/Resolving]
